FAERS Safety Report 6545413-7 (Version None)
Quarter: 2010Q1

REPORT INFORMATION
  Report Type: 
  Country: None (occurrence: None)
  Receive Date: 20100121
  Receipt Date: 20100113
  Transmission Date: 20100710
  Serious: Yes (Death)
  Sender: FDA-Public Use
  Company Number: US-JNJFOC-20100106951

PATIENT
  Age: 51 Year
  Sex: Female

DRUGS (11)
  1. CYCLOBENZAPRINE [Suspect]
     Indication: SUICIDE ATTEMPT
     Route: 048
  2. BETA BLOCKING AGENTS [Suspect]
     Indication: SUICIDE ATTEMPT
     Route: 048
  3. BUPROPION [Suspect]
     Indication: SUICIDE ATTEMPT
     Route: 048
  4. ALPRAZOLAM [Suspect]
     Indication: SUICIDE ATTEMPT
     Route: 048
  5. FLUOXETINE [Suspect]
     Indication: SUICIDE ATTEMPT
     Route: 048
  6. ENALAPRIL MALEATE [Suspect]
     Indication: SUICIDE ATTEMPT
     Route: 048
  7. ZOLPIDEM [Suspect]
     Indication: SUICIDE ATTEMPT
     Route: 048
  8. GLIBENCLAMIDE [Suspect]
     Indication: SUICIDE ATTEMPT
     Route: 048
  9. LISINOPRIL [Suspect]
     Indication: SUICIDE ATTEMPT
     Route: 048
  10. DICLOFENAC SODIUM [Suspect]
     Indication: SUICIDE ATTEMPT
     Route: 048
  11. LOVASTATIN [Suspect]
     Indication: SUICIDE ATTEMPT
     Route: 048

REACTIONS (1)
  - DRUG TOXICITY [None]
